FAERS Safety Report 16355319 (Version 4)
Quarter: 2019Q3

REPORT INFORMATION
  Report Type: Report from Study
  Country: JP (occurrence: JP)
  Receive Date: 20190525
  Receipt Date: 20190912
  Transmission Date: 20191004
  Serious: Yes (Death, Hospitalization, Other)
  Sender: FDA-Public Use
  Company Number: JP-BRISTOL-MYERS SQUIBB COMPANY-BMS-2019-050218

PATIENT
  Age: 35 Year
  Sex: Male
  Weight: 76.1 kg

DRUGS (2)
  1. YERVOY [Suspect]
     Active Substance: IPILIMUMAB
     Indication: MALIGNANT MELANOMA
     Dosage: 3 MILLIGRAM/KILOGRAM/ONCE
     Route: 065
     Dates: start: 20181010, end: 20181010
  2. NIVOLUMAB [Suspect]
     Active Substance: NIVOLUMAB
     Indication: MALIGNANT MELANOMA
     Dosage: 80 MILLIGRAM/BODY
     Route: 041
     Dates: start: 20181010, end: 20181010

REACTIONS (3)
  - Immune-mediated enterocolitis [Recovering/Resolving]
  - Malignant neoplasm progression [Fatal]
  - Rash pruritic [Recovering/Resolving]

NARRATIVE: CASE EVENT DATE: 20181015
